FAERS Safety Report 15012737 (Version 1)
Quarter: 2018Q2

REPORT INFORMATION
  Report Type: Spontaneous
  Country: FR (occurrence: FR)
  Receive Date: 20180614
  Receipt Date: 20180614
  Transmission Date: 20180711
  Serious: Yes (Hospitalization)
  Sender: FDA-Public Use
  Company Number: FR-TEVA-2018-FR-906729

PATIENT
  Age: 63 Year
  Sex: Male
  Weight: 88.6 kg

DRUGS (5)
  1. OXALIPLATINE [Suspect]
     Active Substance: OXALIPLATIN
     Indication: DIFFUSE LARGE B-CELL LYMPHOMA STAGE II
     Route: 041
     Dates: start: 20150506, end: 20150624
  2. CYTARABINE. [Suspect]
     Active Substance: CYTARABINE
     Indication: DIFFUSE LARGE B-CELL LYMPHOMA STAGE II
     Dosage: 200 MG/M2 DAILY;
     Route: 041
     Dates: start: 20150730, end: 20150802
  3. ALKERAN [Suspect]
     Active Substance: MELPHALAN
     Indication: DIFFUSE LARGE B-CELL LYMPHOMA STAGE II
     Route: 041
     Dates: start: 20150803, end: 20150803
  4. ETOPOSIDE. [Suspect]
     Active Substance: ETOPOSIDE
     Indication: DIFFUSE LARGE B-CELL LYMPHOMA STAGE II
     Route: 041
     Dates: start: 20150730, end: 20150802
  5. BICNU [Suspect]
     Active Substance: CARMUSTINE
     Indication: DIFFUSE LARGE B-CELL LYMPHOMA STAGE II
     Route: 041
     Dates: start: 20150729, end: 20150729

REACTIONS (1)
  - Venoocclusive liver disease [Recovered/Resolved]

NARRATIVE: CASE EVENT DATE: 20150812
